FAERS Safety Report 8789941 (Version 2)
Quarter: 2012Q4

REPORT INFORMATION
  Report Type: 
  Country: US (occurrence: US)
  Receive Date: 20120917
  Receipt Date: 20121130
  Transmission Date: 20130627
  Serious: Yes (Other)
  Sender: FDA-Public Use
  Company Number: US-ELI_LILLY_AND_COMPANY-US201209002861

PATIENT
  Sex: Male

DRUGS (6)
  1. CIALIS [Suspect]
     Indication: ERECTILE DYSFUNCTION
     Dosage: 5 mg, qd
  2. CIALIS [Suspect]
     Dosage: 20 mg, prn
  3. METHOTREXATE [Concomitant]
  4. CARDIZEM                           /00489701/ [Concomitant]
  5. LISINOPRIL [Concomitant]
  6. AVODART [Concomitant]

REACTIONS (2)
  - Vision blurred [Unknown]
  - Vascular occlusion [Unknown]
